FAERS Safety Report 17837125 (Version 1)
Quarter: 2020Q2

REPORT INFORMATION
  Report Type: Spontaneous
  Country: FR (occurrence: FR)
  Receive Date: 20200528
  Receipt Date: 20200528
  Transmission Date: 20200714
  Serious: Yes (Hospitalization)
  Sender: FDA-Public Use
  Company Number: FR-MYLANLABS-2020M1052069

PATIENT
  Age: 52 Year
  Sex: Female
  Weight: 55 kg

DRUGS (44)
  1. VITAMINE A [Suspect]
     Active Substance: RETINOL
     Indication: KERATITIS
     Dosage: 25000 INTERNATIONAL UNIT
     Route: 048
  2. ETOPOSIDE. [Concomitant]
     Active Substance: ETOPOSIDE
     Indication: B-CELL LYMPHOMA
     Dosage: DOSE TOTALE ADMINISTR?E : 1480 MG
     Route: 042
     Dates: start: 2016, end: 20161120
  3. TIORFAN [Concomitant]
     Active Substance: RACECADOTRIL
     Indication: DIARRHOEA
     Dosage: NON COMMUNIQU?E
     Route: 048
     Dates: start: 2016, end: 2016
  4. MABTHERA [Concomitant]
     Active Substance: RITUXIMAB
     Indication: B-CELL LYMPHOMA
     Dosage: DOSE TOTALE ADMINISTR?E : 1435 MG
     Route: 042
     Dates: start: 2016, end: 20161010
  5. VINCRISTINE [Concomitant]
     Active Substance: VINCRISTINE
     Indication: B-CELL LYMPHOMA
     Dosage: DOSE TOTALE ADMINISTR?E : 4 MG
     Route: 042
     Dates: start: 2016, end: 20161011
  6. CYTARABINE. [Concomitant]
     Active Substance: CYTARABINE
     Indication: B-CELL LYMPHOMA
     Dosage: DOSE TOTALE ADMINISTR?E : 15242.5 MG
     Route: 042
     Dates: start: 2016, end: 20161120
  7. ECONAZOLE. [Concomitant]
     Active Substance: ECONAZOLE NITRATE
     Indication: INTERTRIGO
     Dosage: 150 MILLIGRAM
     Route: 067
     Dates: start: 2016, end: 2016
  8. VANCOMYCINE                        /00314401/ [Concomitant]
     Active Substance: VANCOMYCIN
     Indication: INFECTION
     Dosage: 2400 MILLIGRAM
     Route: 042
     Dates: start: 2016, end: 2016
  9. MEROPENEM ANHYDROUS [Concomitant]
     Active Substance: MEROPENEM ANHYDROUS
     Indication: PNEUMONIA
     Dosage: 3 GRAM, QD
     Route: 042
     Dates: start: 2016, end: 2016
  10. SPIRONOLACTONE. [Concomitant]
     Active Substance: SPIRONOLACTONE
     Indication: PRODUCT USED FOR UNKNOWN INDICATION
     Dosage: 50 MILLIGRAM
     Route: 048
     Dates: start: 2016, end: 2016
  11. VFEND [Concomitant]
     Active Substance: VORICONAZOLE
     Indication: CANDIDA INFECTION
     Dosage: NON COMMUNIQU?E
     Route: 042
     Dates: start: 2016, end: 2016
  12. CYMBALTA [Concomitant]
     Active Substance: DULOXETINE HYDROCHLORIDE
     Indication: DEPRESSION
     Route: 048
  13. DOXORUBICINE                       /00330901/ [Concomitant]
     Active Substance: DOXORUBICIN
     Indication: B-CELL LYMPHOMA
     Dosage: DOSE TOTALE ADMINISTR?E : 231 MG
     Route: 042
     Dates: start: 2016, end: 20161012
  14. DIFFU K [Concomitant]
     Active Substance: POTASSIUM CHLORIDE
     Indication: HYPOKALAEMIA
     Dosage: 600 MILLIGRAM
     Route: 048
     Dates: start: 2016
  15. PARACETAMOL [Suspect]
     Active Substance: ACETAMINOPHEN
     Indication: PAIN
     Dosage: NON COMMUNIQU?E
     Route: 048
     Dates: start: 2016, end: 2016
  16. METHOTREXATE. [Suspect]
     Active Substance: METHOTREXATE
     Indication: B-CELL LYMPHOMA
     Dosage: DOSE TOTALE ADMINISTR?E : 11580 MG
     Route: 042
     Dates: start: 2016, end: 20161021
  17. METHYLPREDNISOLONE. [Concomitant]
     Active Substance: METHYLPREDNISOLONE
     Indication: PRODUCT USED FOR UNKNOWN INDICATION
     Dosage: DOSE TOTALE ADMINISTR?E : 1380 MG
     Route: 042
     Dates: start: 2016, end: 20161016
  18. ALPRAZOLAM. [Concomitant]
     Active Substance: ALPRAZOLAM
     Indication: ANXIETY
     Dosage: 0.25 MILLIGRAM, QD
     Route: 048
  19. KAYEXALATE [Suspect]
     Active Substance: SODIUM POLYSTYRENE SULFONATE
     Indication: HYPERKALAEMIA
     Dosage: NON COMMUNIQU?E
     Route: 048
     Dates: start: 2016, end: 2016
  20. LASILIX FAIBLE [Suspect]
     Active Substance: FUROSEMIDE
     Indication: PRODUCT USED FOR UNKNOWN INDICATION
     Dosage: 20 MILLIGRAM
     Route: 048
     Dates: start: 2016, end: 2016
  21. TIENAM [Concomitant]
     Active Substance: CILASTATIN SODIUM\IMIPENEM
     Indication: INFECTION
     Dosage: NON COMMUNIQU?E
     Route: 042
     Dates: start: 201610
  22. NIVESTIM [Concomitant]
     Active Substance: FILGRASTIM
     Indication: NEUTROPENIA
     Dosage: NON COMMUNIQU?E
     Route: 042
     Dates: start: 2016, end: 2016
  23. TOPALGIC                           /00599202/ [Concomitant]
     Active Substance: TRAMADOL HYDROCHLORIDE
     Indication: PAIN
     Dosage: NON COMMUNIQU?E
     Route: 048
     Dates: start: 2016, end: 2016
  24. TITANOREINE [Concomitant]
     Active Substance: CARRAGEENAN\TITANIUM\ZINC
     Indication: HAEMORRHOIDS
     Dosage: NON COMMUNIQU?E
     Route: 003
     Dates: start: 2016, end: 2016
  25. IMOVANE [Concomitant]
     Active Substance: ZOPICLONE
     Indication: INSOMNIA
     Dosage: 7.5 MILLIGRAM
     Route: 048
  26. DEPOCYTE [Concomitant]
     Active Substance: CYTARABINE
     Indication: B-CELL LYMPHOMA
     Dosage: 50 MILLIGRAM
     Route: 042
     Dates: start: 20160912, end: 20160912
  27. DIPEPTIVEN [Concomitant]
     Active Substance: ALANYL GLUTAMINE
     Indication: AMINO ACID LEVEL DECREASED
     Dosage: 100 MILLILITER, QD
     Route: 042
     Dates: end: 2016
  28. LAROXYL [Concomitant]
     Active Substance: AMITRIPTYLINE HYDROCHLORIDE
     Indication: PRODUCT USED FOR UNKNOWN INDICATION
     Dosage: 50 MILLIGRAM, QD
     Route: 048
     Dates: end: 2016
  29. BISOCE [Concomitant]
     Active Substance: BISOPROLOL
     Indication: PRODUCT USED FOR UNKNOWN INDICATION
     Dosage: 2.5 MILLIGRAM
     Route: 048
     Dates: start: 2016, end: 2016
  30. HALDOL [Concomitant]
     Active Substance: HALOPERIDOL
     Indication: HALLUCINATION
     Dosage: NON RENSEIGN?E
     Route: 048
  31. HYDROXYZINE [Concomitant]
     Active Substance: HYDROXYZINE HYDROCHLORIDE
     Indication: PRODUCT USED FOR UNKNOWN INDICATION
     Dosage: 100 MILLIGRAM, QD
     Route: 042
     Dates: start: 2016, end: 2016
  32. AMIKACINE                          /00391001/ [Concomitant]
     Active Substance: AMIKACIN
     Indication: INFECTION
     Dosage: NON RENSEIGN?E
     Route: 042
     Dates: start: 2016, end: 2016
  33. INNOHEP [Concomitant]
     Active Substance: TINZAPARIN SODIUM
     Indication: VENOUS THROMBOSIS
     Dosage: 10000 UI/J
     Route: 058
  34. OXYNORM [Concomitant]
     Active Substance: OXYCODONE HYDROCHLORIDE
     Indication: PAIN
     Dosage: UNK
     Route: 042
     Dates: start: 2016
  35. MIDAZOLAM. [Concomitant]
     Active Substance: MIDAZOLAM
     Indication: SEDATION
     Dosage: UNK
     Route: 042
     Dates: start: 2016, end: 2016
  36. FOLINATE DE CALCIUM [Concomitant]
     Active Substance: LEUCOVORIN CALCIUM
     Indication: PRODUCT USED FOR UNKNOWN INDICATION
     Dosage: DOSE TOTALE ADMINISTR?E : 1200 MG
     Route: 042
     Dates: start: 2016, end: 20161014
  37. PANTOPRAZOLE [Concomitant]
     Active Substance: PANTOPRAZOLE
     Indication: GASTRIC ULCER
     Route: 042
  38. DEBRIDAT                           /00465201/ [Concomitant]
     Active Substance: TRIMEBUTINE MALEATE
     Indication: PAIN
     Dosage: UNK
     Route: 048
     Dates: start: 2016, end: 2016
  39. CIPROFLOXACIN. [Suspect]
     Active Substance: CIPROFLOXACIN
     Indication: PRODUCT USED FOR UNKNOWN INDICATION
     Dosage: 500 MILLIGRAM
     Route: 042
     Dates: start: 2016, end: 2016
  40. TRANXENE [Concomitant]
     Active Substance: CLORAZEPATE DIPOTASSIUM
     Indication: ANXIETY
     Dosage: NON COMMUNIQU?E
     Route: 048
     Dates: start: 2016, end: 2016
  41. NEFOPAM [Concomitant]
     Active Substance: NEFOPAM
     Indication: PAIN
     Dosage: SI DOULEUR
     Route: 048
     Dates: start: 2016
  42. SMECTA [Concomitant]
     Active Substance: MONTMORILLONITE
     Indication: DIARRHOEA
     Dosage: NON COMMUNIQU?E
     Route: 048
     Dates: start: 2016, end: 2016
  43. PRIMPERAN [Concomitant]
     Active Substance: METOCLOPRAMIDE HYDROCHLORIDE
     Indication: NAUSEA
     Dosage: SI N?CESSAIRE
     Route: 048
     Dates: start: 2016
  44. VERSATIS [Concomitant]
     Active Substance: LIDOCAINE
     Indication: PAIN
     Dosage: NON COMMUNIQU?E
     Route: 003
     Dates: start: 2016, end: 2016

REACTIONS (1)
  - Granulomatous liver disease [Recovering/Resolving]

NARRATIVE: CASE EVENT DATE: 201612
